FAERS Safety Report 5805994-5 (Version None)
Quarter: 2008Q3

REPORT INFORMATION
  Report Type: 
  Country: None (occurrence: None)
  Receive Date: 20080710
  Receipt Date: 20080630
  Transmission Date: 20090109
  Serious: Yes (Hospitalization)
  Sender: FDA-Public Use
  Company Number: B0527346A

PATIENT
  Age: 35 Year
  Sex: Male

DRUGS (1)
  1. AUGMENTIN '125' [Suspect]
     Indication: TOOTHACHE
     Route: 048
     Dates: start: 20080214, end: 20080216

REACTIONS (3)
  - OEDEMATOUS PANCREATITIS [None]
  - PANCREATIC DISORDER [None]
  - PANCREATITIS ACUTE [None]
